FAERS Safety Report 9772717 (Version 2)
Quarter: 2014Q1

REPORT INFORMATION
  Report Type: Spontaneous
  Country: US (occurrence: US)
  Receive Date: 20131219
  Receipt Date: 20140123
  Transmission Date: 20141002
  Serious: Yes (Other)
  Sender: FDA-Public Use
  Company Number: US-FRI-1000052346

PATIENT
  Age: 83 Year
  Sex: Female

DRUGS (3)
  1. LINZESS [Suspect]
     Indication: CONSTIPATION
     Dosage: 145MCG
     Route: 048
     Dates: start: 20131217, end: 20131217
  2. DIOVAN [Concomitant]
     Indication: HYPERTENSION
     Dosage: 16MG
  3. ATENOLOL [Concomitant]
     Indication: HYPERTENSION
     Dosage: 25MG

REACTIONS (1)
  - Blood pressure increased [Recovered/Resolved]
